FAERS Safety Report 24655612 (Version 1)
Quarter: 2024Q4

REPORT INFORMATION
  Report Type: Spontaneous
  Country: CN (occurrence: CN)
  Receive Date: 20241123
  Receipt Date: 20241123
  Transmission Date: 20250114
  Serious: Yes (Hospitalization)
  Sender: ACCORD
  Company Number: CN-MLMSERVICE-20241108-PI250375-00123-3

PATIENT
  Age: 74 Year
  Sex: Female
  Weight: 55 kg

DRUGS (16)
  1. DOCETAXEL [Suspect]
     Active Substance: DOCETAXEL
     Indication: Hormone receptor positive breast cancer
     Dates: start: 20211223
  2. IBANDRONATE SODIUM [Concomitant]
     Active Substance: IBANDRONATE SODIUM
     Indication: Metastases to bone
     Dosage: LOADING DOSE 6 MG DAILY FOR 3 DAYS AND CONTINUING TREATMENT FOR ANOTHER 3 DAYS
     Dates: start: 20211215
  3. HYDROMORPHONE HCL [Concomitant]
     Active Substance: HYDROMORPHONE HYDROCHLORIDE
     Indication: Analgesic therapy
     Dosage: INCREASED TO 120 MG OF HYDROMORPHONE; SUSTAINED-RELEASE
     Dates: start: 20211215
  4. TRAMADOL HYDROCHLORIDE [Concomitant]
     Active Substance: TRAMADOL HYDROCHLORIDE
     Indication: Analgesic therapy
     Dosage: ALTERNATELY WITH ACETAMINOPHEN-DIHYDROCODEINE; EXTENDED-RELEASE
     Dates: start: 2021
  5. OXYCODONE HYDROCHLORIDE [Concomitant]
     Active Substance: OXYCODONE HYDROCHLORIDE
     Indication: Analgesic therapy
     Dosage: SUSTAINED-RELEASE
     Dates: start: 2021
  6. MORPHINE [Concomitant]
     Active Substance: MORPHINE
     Indication: Analgesic therapy
     Dosage: TAKEN DURING PAIN EPISODES IN ADDITION WITH OXYCODONE
     Dates: start: 2021
  7. HYDROCODONE BITARTRATE [Concomitant]
     Active Substance: HYDROCODONE BITARTRATE
     Indication: Analgesic therapy
     Dosage: GRADUALLY INCREASED TO 80 MG EVERY 12 HOURS WITH ADDITIONAL MORPHINE 20 MG TABLETS; EXTENDED-RELEASE
     Dates: start: 2021
  8. Paracetamol, Dihydrocodeine [Concomitant]
     Indication: Analgesic therapy
     Dosage: ALTERNATING DOSES OF 500 MG EVERY 6 HOURS WITH TRAMADOL HYDROCHLORIDE
     Dates: start: 2021
  9. IBANDRONATE SODIUM [Concomitant]
     Active Substance: IBANDRONATE SODIUM
     Indication: Bone pain
     Dosage: LOADING DOSE 6 MG DAILY FOR 3 DAYS AND CONTINUING TREATMENT FOR ANOTHER 3 DAYS
     Dates: start: 20211215
  10. DOCETAXEL [Suspect]
     Active Substance: DOCETAXEL
     Indication: Metastases to bone
     Dates: start: 20211223
  11. DOCETAXEL [Suspect]
     Active Substance: DOCETAXEL
     Indication: Metastases to liver
     Dates: start: 20211223
  12. DOCETAXEL [Suspect]
     Active Substance: DOCETAXEL
     Indication: Metastases to spleen
     Dates: start: 20211223
  13. DOCETAXEL [Suspect]
     Active Substance: DOCETAXEL
     Indication: Metastases to spine
     Dates: start: 20211223
  14. DOCETAXEL [Suspect]
     Active Substance: DOCETAXEL
     Indication: Adenocarcinoma metastatic
     Dates: start: 20211223
  15. DOCETAXEL [Suspect]
     Active Substance: DOCETAXEL
     Indication: Metastases to lymph nodes
     Dates: start: 20211223
  16. MORPHINE [Concomitant]
     Active Substance: MORPHINE
     Indication: Analgesic therapy
     Dosage: USED DURING PAIN EXACERBATIONS IN ADDITIONAL WITH HYDROCODONE BITARTRATE
     Dates: start: 2021

REACTIONS (2)
  - Myelosuppression [Recovering/Resolving]
  - Blood albumin decreased [Unknown]
